FAERS Safety Report 21005712 (Version 1)
Quarter: 2022Q2

REPORT INFORMATION
  Report Type: Spontaneous
  Country: GB (occurrence: GB)
  Receive Date: 20220624
  Receipt Date: 20220624
  Transmission Date: 20220721
  Serious: Yes (Other)
  Sender: FDA-Public Use
  Company Number: GB-MHRA-MED-202206121612078320-PRCVH

PATIENT
  Age: 38 Year
  Sex: Female
  Weight: 56 kg

DRUGS (1)
  1. DOXYCYCLINE [Suspect]
     Active Substance: DOXYCYCLINE
     Indication: Cervicitis
     Dosage: 200 MILLIGRAM DAILY; THERAPY DURATION : 7 DAYS, UNIT DOSE : 100 MG, FREQUENCY : 2 , FREQUENCY TIME :
     Route: 065
     Dates: end: 20220611

REACTIONS (2)
  - Neuropathy peripheral [Not Recovered/Not Resolved]
  - Nightmare [Not Recovered/Not Resolved]

NARRATIVE: CASE EVENT DATE: 20220608
